FAERS Safety Report 4870922-6 (Version None)
Quarter: 2006Q1

REPORT INFORMATION
  Report Type: 
  Country: None (occurrence: None)
  Receive Date: 20060103
  Receipt Date: 20051130
  Transmission Date: 20060701
  Serious: Yes (Other)
  Sender: FDA-Public Use
  Company Number: AU-ROCHE-426633

PATIENT
  Age: 73 Year
  Sex: Male

DRUGS (9)
  1. CEFTRIAXONE [Suspect]
     Indication: DRUG USE FOR UNKNOWN INDICATION
     Route: 065
     Dates: start: 20030801, end: 20030804
  2. CEFACLOR [Suspect]
     Indication: DRUG USE FOR UNKNOWN INDICATION
     Route: 065
     Dates: start: 20030805
  3. CLARITHROMYCIN [Suspect]
     Indication: DRUG USE FOR UNKNOWN INDICATION
     Route: 065
     Dates: start: 20030801, end: 20030808
  4. EPILIM [Concomitant]
  5. ZOLOFT [Concomitant]
  6. PREDNISOLONE [Concomitant]
  7. SALBUTAMOL [Concomitant]
  8. QVAR [Concomitant]
  9. VENTOLIN [Concomitant]

REACTIONS (5)
  - ANAPHYLACTIC REACTION [None]
  - CARDIO-RESPIRATORY ARREST [None]
  - PULMONARY EMBOLISM [None]
  - RASH ERYTHEMATOUS [None]
  - RASH GENERALISED [None]
